FAERS Safety Report 9601783 (Version 1)
Quarter: 2013Q4

REPORT INFORMATION
  Report Type: Spontaneous
  Country: US (occurrence: None)
  Receive Date: 20131004
  Receipt Date: 20131004
  Transmission Date: 20140711
  Serious: Yes (Other)
  Sender: FDA-Public Use
  Company Number: None

PATIENT
  Age: 52 Year
  Sex: Male
  Weight: 81.65 kg

DRUGS (2)
  1. LEVOFLAXACIN 500MG DR. REDDY [Suspect]
     Indication: PROSTATOMEGALY
     Route: 048
     Dates: start: 20130912, end: 20130912
  2. TAMSULOSIN [Concomitant]

REACTIONS (1)
  - Tendon pain [None]
